FAERS Safety Report 14787952 (Version 1)
Quarter: 2018Q2

REPORT INFORMATION
  Report Type: Spontaneous
  Country: US (occurrence: US)
  Receive Date: 20180422
  Receipt Date: 20180422
  Transmission Date: 20180711
  Serious: No
  Sender: FDA-Public Use
  Company Number: US-DUCHESNAY INC.-2018US002110

PATIENT
  Age: 57 Year
  Sex: Female

DRUGS (2)
  1. OSTEO BI-FLEX                      /01431201/ [Concomitant]
     Indication: PRODUCT USED FOR UNKNOWN INDICATION
  2. OSPHENA [Suspect]
     Active Substance: OSPEMIFENE
     Indication: PRODUCT USED FOR UNKNOWN INDICATION
     Dosage: 60 MG, DAILY
     Route: 048
     Dates: start: 20170826, end: 20180213

REACTIONS (1)
  - Abdominal discomfort [Recovered/Resolved]

NARRATIVE: CASE EVENT DATE: 20170916
